FAERS Safety Report 16117259 (Version 2)
Quarter: 2020Q3

REPORT INFORMATION
  Report Type: Report from Study
  Country: GB (occurrence: GB)
  Receive Date: 20190326
  Receipt Date: 20190619
  Transmission Date: 20201105
  Serious: Yes (Hospitalization)
  Sender: FDA-Public Use
  Company Number: GB-009507513-1903GBR008825

PATIENT
  Age: 71 Year
  Sex: Female
  Weight: 59 kg

DRUGS (10)
  1. SALBUTAMOL ALDO UNION [Concomitant]
     Indication: ASTHMA
     Dosage: 1.0 PUFF
     Route: 055
     Dates: start: 19880115
  2. SELUMETINIB SULFATE. [Suspect]
     Active Substance: SELUMETINIB SULFATE
     Dosage: 75 MILLIGRAM, BID
     Route: 048
     Dates: start: 20181010, end: 20181012
  3. DOMPERIDONE [Concomitant]
     Active Substance: DOMPERIDONE
     Indication: NAUSEA
     Dosage: 10 MILLIGRAM, TID
     Route: 048
     Dates: start: 20180801
  4. BECLOMETHASONE DIPROPIONATE [Concomitant]
     Active Substance: BECLOMETHASONE DIPROPIONATE
     Indication: ASTHMA
     Dosage: UNK
     Route: 055
     Dates: start: 19880115
  5. INDAPAMIDE. [Concomitant]
     Active Substance: INDAPAMIDE
     Indication: HYPERTENSION
     Dosage: 2.5 MILLIGRAM, QD
     Route: 048
     Dates: start: 20180830
  6. CETRABEN EMOLLIENT CREAM [Concomitant]
     Indication: RASH
     Dosage: 1 GRAM, PRN
     Route: 061
     Dates: start: 20180801
  7. PEMBROLIZUMAB. [Suspect]
     Active Substance: PEMBROLIZUMAB
  8. SELUMETINIB SULFATE. [Suspect]
     Active Substance: SELUMETINIB SULFATE
     Indication: METASTATIC OCULAR MELANOMA
     Dosage: 75 MILLIGRAM, BID
     Route: 048
     Dates: start: 20180801, end: 20180926
  9. LACTULOSE. [Concomitant]
     Active Substance: LACTULOSE
     Indication: CONSTIPATION
     Dosage: UNK
     Route: 048
     Dates: start: 20180814
  10. BENZOYL PEROXIDE (+) HYDROCORTISONE (+) POTASSIUM OXYQUINOLINE SULFATE [Concomitant]
     Indication: RASH
     Dosage: 1 PERCENT, BID
     Route: 061
     Dates: start: 20180820

REACTIONS (1)
  - Aspartate aminotransferase increased [Recovered/Resolved]

NARRATIVE: CASE EVENT DATE: 20180928
